FAERS Safety Report 22861182 (Version 5)
Quarter: 2024Q1

REPORT INFORMATION
  Report Type: Spontaneous
  Country: US (occurrence: US)
  Receive Date: 20230824
  Receipt Date: 20240214
  Transmission Date: 20240409
  Serious: Yes (Other)
  Sender: FDA-Public Use
  Company Number: US-GLENMARK PHARMACEUTICALS-2023GMK084291

PATIENT

DRUGS (1)
  1. OLMESARTAN MEDOXOMIL [Suspect]
     Active Substance: OLMESARTAN MEDOXOMIL
     Indication: Product used for unknown indication
     Dosage: 1 DOSAGE FORM, QD
     Route: 048

REACTIONS (16)
  - Neurotoxicity [Recovered/Resolved]
  - Heart rate decreased [Recovered/Resolved]
  - Movement disorder [Recovered/Resolved]
  - Blood pressure fluctuation [Recovered/Resolved]
  - Immune-mediated adverse reaction [Recovered/Resolved]
  - Muscular weakness [Recovered/Resolved]
  - Gait disturbance [Recovered/Resolved]
  - Adverse drug reaction [Recovered/Resolved]
  - Loss of personal independence in daily activities [Recovered/Resolved]
  - Fatigue [Recovered/Resolved]
  - Malaise [Recovered/Resolved]
  - Asthenia [Recovered/Resolved]
  - Product quality issue [Unknown]
  - Suspected product contamination [Unknown]
  - Blood pressure decreased [Recovered/Resolved]
  - Pain [Unknown]
